FAERS Safety Report 8661309 (Version 2)
Quarter: 2013Q3

REPORT INFORMATION
  Report Type: Report from Study
  Country: MX (occurrence: MX)
  Receive Date: 20120712
  Receipt Date: 20130819
  Transmission Date: 20140515
  Serious: No
  Sender: FDA-Public Use
  Company Number: PHHY2012MX058899

PATIENT
  Sex: Female

DRUGS (7)
  1. EXFORGE [Suspect]
     Indication: ANGINA PECTORIS
     Dosage: 1 DF (160/12.5 MG), DAILY
     Dates: start: 201203
  2. CO-DIOVAN [Suspect]
     Indication: HYPERTENSION
     Dosage: 1 DF (160/12.5), DAILY
     Dates: start: 2010
  3. ATORVASTATIN [Concomitant]
     Indication: BLOOD CHOLESTEROL INCREASED
     Dosage: 20 MG, QD
  4. NIFEDIPINE [Concomitant]
     Indication: HYPERTENSION
     Dosage: 30 MG, UNK
     Dates: start: 2002
  5. METOPROLOL [Concomitant]
     Indication: HYPERTENSION
     Dosage: 95 MG, QD
     Dates: start: 2010
  6. ACTONEL [Concomitant]
     Indication: OSTEOPOROSIS
     Dosage: 1 DF, UNK
     Dates: start: 2005
  7. ASPIRINA [Concomitant]
     Indication: CARDIOVASCULAR DISORDER
     Dosage: 1 DF, QD

REACTIONS (1)
  - Blood cholesterol increased [Recovering/Resolving]
